FAERS Safety Report 7269230-8 (Version None)
Quarter: 2011Q1

REPORT INFORMATION
  Report Type: 
  Country: None (occurrence: None)
  Receive Date: 20110202
  Receipt Date: 20110125
  Transmission Date: 20110831
  Serious: Yes (Hospitalization)
  Sender: FDA-Public Use
  Company Number: US-ABBOTT-97P-163-0517694-00

PATIENT
  Age: 28 Year
  Sex: Female

DRUGS (4)
  1. LUPRON DEPOT [Suspect]
     Indication: ENDOMETRIOSIS
     Route: 030
  2. LUPRON DEPOT [Suspect]
     Indication: PREMENSTRUAL SYNDROME
  3. ZOVIRAX [Concomitant]
     Indication: GENITAL HERPES
     Dosage: NO DATES PROVIDED
  4. PROVENTIL [Concomitant]
     Indication: ASTHMA
     Dosage: NO DATES PROVIDED
     Route: 055

REACTIONS (1)
  - MANIA [None]
